FAERS Safety Report 5939899-6 (Version None)
Quarter: 2008Q4

REPORT INFORMATION
  Report Type: 
  Country: None (occurrence: None)
  Receive Date: 20081104
  Receipt Date: 20081029
  Transmission Date: 20090506
  Serious: Yes (Other)
  Sender: FDA-Public Use
  Company Number: NL-ALLERGAN-0810903US

PATIENT
  Sex: Male
  Weight: 20 kg

DRUGS (2)
  1. BOTOX [Suspect]
     Indication: CEREBRAL PALSY
     Dosage: 330 UNITS, SINGLE
     Route: 030
     Dates: start: 20080305, end: 20080305
  2. MOVICOLON [Concomitant]
     Indication: CONSTIPATION

REACTIONS (5)
  - COORDINATION ABNORMAL [None]
  - DROOLING [None]
  - EATING DISORDER [None]
  - INCONTINENCE [None]
  - SPEECH DISORDER [None]
